FAERS Safety Report 20692742 (Version 1)
Quarter: 2022Q2

REPORT INFORMATION
  Report Type: Spontaneous
  Country: DE (occurrence: DE)
  Receive Date: 20220409
  Receipt Date: 20220409
  Transmission Date: 20220721
  Serious: Yes (Other)
  Sender: FDA-Public Use
  Company Number: DE-NOVARTISPH-NVSC2022DE063190

PATIENT
  Sex: Female
  Weight: 65 kg

DRUGS (2)
  1. GILENYA [Suspect]
     Active Substance: FINGOLIMOD HYDROCHLORIDE
     Indication: Multiple sclerosis
     Dosage: 0.5 MG
     Route: 065
  2. GILENYA [Suspect]
     Active Substance: FINGOLIMOD HYDROCHLORIDE
     Dosage: 0.5 MG, QD
     Route: 048
     Dates: start: 20200706

REACTIONS (3)
  - Neutrophil toxic granulation present [Unknown]
  - Lymphocyte count decreased [Not Recovered/Not Resolved]
  - Full blood count abnormal [Unknown]

NARRATIVE: CASE EVENT DATE: 20220311
